FAERS Safety Report 6013210-7 (Version None)
Quarter: 2008Q4

REPORT INFORMATION
  Report Type: 
  Country: None (occurrence: None)
  Receive Date: 20081218
  Receipt Date: 20081218
  Transmission Date: 20090506
  Serious: Yes (Other)
  Sender: FDA-Public Use
  Company Number: None

PATIENT
  Sex: Male
  Weight: 73.4827 kg

DRUGS (1)
  1. MAGNESIUM CITRATE 10 FL OZ.====2 TAKEN SAFEWAY [Suspect]
     Indication: COLONOSCOPY
     Dosage: 10 OZ.==2 BOTTLES TWICE PO
     Route: 048
     Dates: start: 20081216, end: 20081216

REACTIONS (2)
  - BLOOD GLUCOSE INCREASED [None]
  - MEDICATION ERROR [None]
